FAERS Safety Report 17446909 (Version 1)
Quarter: 2020Q1

REPORT INFORMATION
  Report Type: Other
  Country: US (occurrence: US)
  Receive Date: 20200221
  Receipt Date: 20200221
  Transmission Date: 20200409
  Serious: Yes (Other)
  Sender: FDA-Public Use
  Company Number: US-INTERCEPT-PM2020000379

PATIENT
  Age: 50 Year
  Sex: Female

DRUGS (2)
  1. OCALIVA [Suspect]
     Active Substance: OBETICHOLIC ACID
     Indication: PRIMARY BILIARY CHOLANGITIS
     Dosage: 5 MG, QD
     Route: 048
     Dates: start: 20190922, end: 20190925
  2. OCALIVA [Suspect]
     Active Substance: OBETICHOLIC ACID
     Dosage: 5 UNK, UNK
     Route: 048
     Dates: start: 20191002

REACTIONS (9)
  - Scratch [Unknown]
  - Alanine aminotransferase abnormal [Unknown]
  - Product dose omission [Recovered/Resolved]
  - Nausea [Unknown]
  - Blood alkaline phosphatase increased [Unknown]
  - Pruritus [Unknown]
  - Contusion [Unknown]
  - Nephrolithiasis [Not Recovered/Not Resolved]
  - Pain [Unknown]

NARRATIVE: CASE EVENT DATE: 202001
